FAERS Safety Report 13467553 (Version 3)
Quarter: 2017Q3

REPORT INFORMATION
  Report Type: Report from Study
  Country: US (occurrence: US)
  Receive Date: 20170421
  Receipt Date: 20170922
  Transmission Date: 20171127
  Serious: Yes (Hospitalization, Other)
  Sender: FDA-Public Use
  Company Number: US-MYLANLABS-2017M1024905

PATIENT

DRUGS (20)
  1. MERCAPTOPURINE. [Suspect]
     Active Substance: MERCAPTOPURINE
     Indication: ACUTE LYMPHOCYTIC LEUKAEMIA
     Dosage: 100 MG (4 DAYS QW) AND 125 MG (3 DAYS QW)
     Route: 048
     Dates: start: 20170313
  2. INVESTIGATIONAL DRUG [Suspect]
     Active Substance: INVESTIGATIONAL PRODUCT
     Indication: B PRECURSOR TYPE ACUTE LEUKAEMIA
     Dosage: 70 MG, BID
     Route: 048
     Dates: start: 20170313
  3. PEGASPARGASE [Suspect]
     Active Substance: PEGASPARGASE
     Indication: B PRECURSOR TYPE ACUTE LEUKAEMIA
     Dosage: 4550 IU, UNK
     Route: 042
     Dates: start: 20170327
  4. VINCRISTINE [Suspect]
     Active Substance: VINCRISTINE
     Dosage: 2 MG, UNK
     Route: 042
     Dates: start: 20170327
  5. VINCRISTINE [Suspect]
     Active Substance: VINCRISTINE
     Dosage: 2 MG, UNK
     Route: 042
     Dates: start: 20170424
  6. CYTARABINE. [Suspect]
     Active Substance: CYTARABINE
     Indication: B PRECURSOR TYPE ACUTE LEUKAEMIA
     Dosage: 136 MG, UNK
     Route: 042
     Dates: start: 20170313
  7. CYTARABINE. [Suspect]
     Active Substance: CYTARABINE
     Dosage: 136 MG, UNK
     Route: 042
     Dates: start: 20170417, end: 20170420
  8. METHOTREXATE. [Suspect]
     Active Substance: METHOTREXATE
     Dosage: 15 MG, UNK
     Route: 037
     Dates: start: 20170731
  9. DOXORUBICIN [Suspect]
     Active Substance: DOXORUBICIN
     Indication: B PRECURSOR TYPE ACUTE LEUKAEMIA
     Dosage: 45 MG, UNK
     Route: 042
     Dates: start: 20170731
  10. DEXAMETHASONE. [Suspect]
     Active Substance: DEXAMETHASONE
     Indication: B PRECURSOR TYPE ACUTE LEUKAEMIA
     Dosage: 9 MG, BID
     Route: 048
     Dates: start: 20170731
  11. CYCLOPHOSPHAMIDE. [Suspect]
     Active Substance: CYCLOPHOSPHAMIDE
     Indication: B PRECURSOR TYPE ACUTE LEUKAEMIA
     Dosage: 1820 MG, UNK
     Route: 042
     Dates: start: 20170313
  12. METHOTREXATE. [Suspect]
     Active Substance: METHOTREXATE
     Dosage: 15 MG, UNK
     Route: 037
     Dates: start: 20170403
  13. MERCAPTOPURINE. [Suspect]
     Active Substance: MERCAPTOPURINE
     Dosage: 100 MG (4 DAYS QW) AND 125 MG (3 DAYS QW)
     Route: 048
     Dates: start: 20170410
  14. PEGASPARGASE [Suspect]
     Active Substance: PEGASPARGASE
     Dosage: 4550 IU, UNK
     Route: 042
     Dates: start: 20170424
  15. VINCRISTINE [Suspect]
     Active Substance: VINCRISTINE
     Indication: B PRECURSOR TYPE ACUTE LEUKAEMIA
     Dosage: 2 MG, UNK
     Route: 042
     Dates: start: 20170313
  16. METHOTREXATE. [Suspect]
     Active Substance: METHOTREXATE
     Indication: B PRECURSOR TYPE ACUTE LEUKAEMIA
     Dosage: 15 MG, UNK
     Route: 037
     Dates: start: 20170313
  17. PEGASPARGASE [Suspect]
     Active Substance: PEGASPARGASE
     Dosage: 4550 IU, UNK
     Route: 042
     Dates: start: 20170803
  18. DOXORUBICIN [Suspect]
     Active Substance: DOXORUBICIN
     Dosage: 45 MG, UNK
     Route: 042
     Dates: start: 20170807
  19. CYCLOPHOSPHAMIDE. [Suspect]
     Active Substance: CYCLOPHOSPHAMIDE
     Dosage: 1820 MG, UNK
     Route: 042
     Dates: start: 20170410
  20. VINCRISTINE [Suspect]
     Active Substance: VINCRISTINE
     Dosage: 2 MG, UNK
     Route: 042
     Dates: start: 20170807

REACTIONS (1)
  - Febrile neutropenia [Not Recovered/Not Resolved]

NARRATIVE: CASE EVENT DATE: 20170328
